FAERS Safety Report 5712335-0 (Version None)
Quarter: 2008Q2

REPORT INFORMATION
  Report Type: 
  Country: None (occurrence: None)
  Receive Date: 20080417
  Receipt Date: 20080408
  Transmission Date: 20081010
  Serious: Yes (Death, Other)
  Sender: FDA-Public Use
  Company Number: 163-21880-07120543

PATIENT
  Age: 59 Year
  Sex: Male

DRUGS (4)
  1. REVLIMID [Suspect]
     Indication: MULTIPLE MYELOMA
     Dosage: 25 MG, QD X21 DAYS, ORAL
     Route: 048
     Dates: start: 20071206, end: 20071208
  2. DEXAMETHASONE TAB [Concomitant]
  3. VELCADE [Concomitant]
  4. ALLOPURINOL [Concomitant]

REACTIONS (2)
  - DERMATITIS [None]
  - HYPERSENSITIVITY [None]
